FAERS Safety Report 24428161 (Version 1)
Quarter: 2024Q4

REPORT INFORMATION
  Report Type: Report from Study
  Country: DE (occurrence: DE)
  Receive Date: 20241011
  Receipt Date: 20241011
  Transmission Date: 20250114
  Serious: Yes (Hospitalization, Other)
  Sender: JOHNSON AND JOHNSON
  Company Number: DE-JNJFOC-20241027135

PATIENT
  Sex: Male
  Weight: 77 kg

DRUGS (4)
  1. TALQUETAMAB [Suspect]
     Active Substance: TALQUETAMAB
     Indication: Plasma cell myeloma
     Dosage: 9TH LINE OF THERAPY
     Route: 065
     Dates: start: 20240124
  2. TALQUETAMAB [Suspect]
     Active Substance: TALQUETAMAB
     Dosage: 9TH LINE OF THERAPY
     Route: 065
     Dates: start: 20240311, end: 20240430
  3. VALERIAN [Concomitant]
     Active Substance: VALERIAN
     Indication: Insomnia
     Dates: start: 20220615
  4. PANTOPRAZOLE [Concomitant]
     Active Substance: PANTOPRAZOLE
     Indication: Dyspepsia
     Dates: start: 20220714

REACTIONS (2)
  - Pneumonia adenoviral [Recovered/Resolved]
  - Plasma cell myeloma [Unknown]

NARRATIVE: CASE EVENT DATE: 20240212
